FAERS Safety Report 22635160 (Version 2)
Quarter: 2024Q3

REPORT INFORMATION
  Report Type: Spontaneous
  Country: FR (occurrence: FR)
  Receive Date: 20230623
  Receipt Date: 20240729
  Transmission Date: 20241017
  Serious: Yes (Hospitalization)
  Sender: RANBAXY
  Company Number: FR-AFSSAPS-NT2023000357

PATIENT
  Age: 28 Year
  Sex: Male
  Weight: 43 kg

DRUGS (9)
  1. PANTOPRAZOLE [Suspect]
     Active Substance: PANTOPRAZOLE
     Indication: Gastrooesophageal reflux disease
     Dosage: 40 MILLIGRAM, DAILY
     Route: 040
     Dates: start: 20230310, end: 20230315
  2. PAROXETINE [Suspect]
     Active Substance: PAROXETINE
     Indication: Depression
     Dosage: 20 MILLIGRAM, DAILY
     Route: 048
     Dates: start: 20230302, end: 20230315
  3. CEFEPIME [Suspect]
     Active Substance: CEFEPIME HYDROCHLORIDE
     Indication: Abscess
     Dosage: 4 GRAM, DAILY
     Route: 040
     Dates: start: 20230227, end: 20230308
  4. METOCLOPRAMIDE [Suspect]
     Active Substance: METOCLOPRAMIDE
     Indication: Vomiting
     Dosage: 10 MILLIGRAM, TID
     Route: 040
     Dates: start: 20230207, end: 20230315
  5. METOCLOPRAMIDE [Suspect]
     Active Substance: METOCLOPRAMIDE
     Indication: Nausea
  6. ISAVUCONAZOLE [Suspect]
     Active Substance: ISAVUCONAZOLE
     Indication: Systemic candida
     Dosage: 800 MILLIGRAM, DAILY, 400 MGX2/D
     Route: 040
     Dates: start: 20230314, end: 20230315
  7. ONDANSETRON [Suspect]
     Active Substance: ONDANSETRON
     Indication: Vomiting
     Dosage: 4 MILLIGRAM
     Route: 040
     Dates: start: 20230314, end: 20230315
  8. METRONIDAZOLE [Suspect]
     Active Substance: METRONIDAZOLE
     Indication: Infection
     Dosage: 500 MILLIGRAM, TID
     Route: 040
     Dates: start: 20230203, end: 20230315
  9. VORICONAZOLE [Suspect]
     Active Substance: VORICONAZOLE
     Indication: Antifungal prophylaxis
     Dosage: 600 MILLIGRAM, DAILY, 300 MGX2/D
     Route: 048
     Dates: start: 20230303, end: 20230314

REACTIONS (1)
  - Agranulocytosis [Recovered/Resolved]

NARRATIVE: CASE EVENT DATE: 20230315
